FAERS Safety Report 9053499 (Version 1)
Quarter: 2013Q1

REPORT INFORMATION
  Report Type: Spontaneous
  Country: US (occurrence: None)
  Receive Date: 20130117
  Receipt Date: 20130117
  Transmission Date: 20140127
  Serious: Yes (Other)
  Sender: FDA-Public Use
  Company Number: 2013AP000034

PATIENT
  Age: 64 Year
  Sex: Male

DRUGS (13)
  1. ALLOPURINOL TABLETS, USP [Suspect]
     Indication: PRODUCT USED FOR UNKNOWN INDICATION
  2. HYDROXYCARVAMIDE [Concomitant]
  3. LORAZEPAM [Concomitant]
  4. AZITHROMYCIN [Concomitant]
  5. CALCIUM [Concomitant]
  6. FERROUS SULFATE [Concomitant]
  7. AMLODIPINE [Concomitant]
  8. TAMSULOSIN [Concomitant]
  9. POTASSIUM CITRAE [Concomitant]
  10. FUROSEMIDE [Concomitant]
  11. CALCITRIOL [Concomitant]
  12. LANSOPRAZOLE [Concomitant]
  13. DOCUSATE [Concomitant]

REACTIONS (1)
  - Interstitial granulomatous dermatitis [None]
